FAERS Safety Report 23100190 (Version 3)
Quarter: 2023Q4

REPORT INFORMATION
  Report Type: Report from Study
  Country: US (occurrence: US)
  Receive Date: 20231024
  Receipt Date: 20231207
  Transmission Date: 20240109
  Serious: Yes (Hospitalization, Other)
  Sender: FDA-Public Use
  Company Number: US-INSMED, INC.-2023-03330-US

PATIENT
  Sex: Female

DRUGS (1)
  1. ARIKAYCE [Suspect]
     Active Substance: AMIKACIN
     Indication: Mycobacterium avium complex infection
     Dosage: 590 MILLIGRAM, QD
     Route: 055
     Dates: start: 20230823, end: 2023

REACTIONS (13)
  - Peripheral swelling [Unknown]
  - Oedema peripheral [Unknown]
  - Cellulitis [Unknown]
  - Ill-defined disorder [Unknown]
  - Feeling abnormal [Unknown]
  - Deafness [Unknown]
  - Vision blurred [Unknown]
  - Dysgeusia [Not Recovered/Not Resolved]
  - Aphonia [Unknown]
  - Dysphonia [Not Recovered/Not Resolved]
  - Tinnitus [Unknown]
  - Oropharyngeal pain [Not Recovered/Not Resolved]
  - Therapy interrupted [Unknown]

NARRATIVE: CASE EVENT DATE: 20230101
